FAERS Safety Report 9780764 (Version 1)
Quarter: 2013Q4

REPORT INFORMATION
  Report Type: Spontaneous
  Country: GB (occurrence: GB)
  Receive Date: 20131224
  Receipt Date: 20131224
  Transmission Date: 20140711
  Serious: Yes (Other)
  Sender: FDA-Public Use
  Company Number: PHFR2013GB007253

PATIENT
  Sex: Female

DRUGS (2)
  1. CLOZARIL [Suspect]
     Dosage: UNK
     Route: 048
     Dates: start: 20131014
  2. CLOZARIL [Suspect]
     Dosage: DOSE INCREASED
     Route: 048

REACTIONS (4)
  - Respiratory tract infection [Unknown]
  - Pyrexia [Unknown]
  - Tachycardia [Unknown]
  - Thyroxine increased [Unknown]
